FAERS Safety Report 6189368-6 (Version None)
Quarter: 2009Q2

REPORT INFORMATION
  Report Type: 
  Country: None (occurrence: None)
  Receive Date: 20090512
  Receipt Date: 20090505
  Transmission Date: 20091009
  Serious: Yes (Hospitalization, Other)
  Sender: FDA-Public Use
  Company Number: CLOF-1000493

PATIENT
  Age: 54 Year
  Sex: Male
  Weight: 82.8 kg

DRUGS (11)
  1. CLOLAR [Suspect]
     Indication: ACUTE MYELOID LEUKAEMIA
     Dosage: 20 MG/M2, QD, INTRAVENOUS
     Route: 042
     Dates: start: 20090210, end: 20090213
  2. VORICONAZOLE (VORICONAZOLE) [Concomitant]
  3. CIPROFLOXACIN [Concomitant]
  4. DAPSONE [Concomitant]
  5. POTASSIUM CHLORIDE [Concomitant]
  6. VALTREX [Concomitant]
  7. CASPOFUNGIN (CASPOFUNGIN) [Concomitant]
  8. PROTONIX [Concomitant]
  9. VANCOMYCIN HYDROCHLORIDE [Concomitant]
  10. REGLAN [Concomitant]
  11. TESSALON [Concomitant]

REACTIONS (9)
  - ACUTE MYELOID LEUKAEMIA [None]
  - CONDITION AGGRAVATED [None]
  - ERYTHROLEUKAEMIA [None]
  - FATIGUE [None]
  - FLUID OVERLOAD [None]
  - PERICARDIAL EFFUSION [None]
  - PLEURAL EFFUSION [None]
  - PNEUMONIA FUNGAL [None]
  - RENAL IMPAIRMENT [None]
